FAERS Safety Report 12977168 (Version 1)
Quarter: 2016Q4

REPORT INFORMATION
  Report Type: Spontaneous
  Country: US (occurrence: US)
  Receive Date: 20161128
  Receipt Date: 20161128
  Transmission Date: 20170207
  Serious: No
  Sender: FDA-Public Use
  Company Number: US-AMGEN-USASP2016152792

PATIENT
  Age: 34 Year
  Sex: Female

DRUGS (11)
  1. AMITRIPTYLINE [Concomitant]
     Active Substance: AMITRIPTYLINE
  2. BUTALBITAL [Concomitant]
     Active Substance: BUTALBITAL
  3. PROBIOTIC [Concomitant]
     Active Substance: PROBIOTICS NOS
  4. MELOXICAM. [Concomitant]
     Active Substance: MELOXICAM
  5. HYDROCODONE [Concomitant]
     Active Substance: HYDROCODONE
  6. IRON [Concomitant]
     Active Substance: IRON
  7. CRANBERRY. [Concomitant]
     Active Substance: CRANBERRY
  8. ENBREL [Suspect]
     Active Substance: ETANERCEPT
     Indication: ARTHRITIS
     Dosage: 50 MG, QWK
     Route: 065
     Dates: start: 20161026
  9. LEVEMIR [Concomitant]
     Active Substance: INSULIN DETEMIR
  10. OMEPRAZOLE. [Concomitant]
     Active Substance: OMEPRAZOLE
  11. VITAMIN B [Concomitant]
     Active Substance: VITAMIN B

REACTIONS (1)
  - Off label use [Not Recovered/Not Resolved]

NARRATIVE: CASE EVENT DATE: 20161026
